FAERS Safety Report 14586918 (Version 1)
Quarter: 2018Q1

REPORT INFORMATION
  Report Type: Spontaneous
  Country: US (occurrence: US)
  Receive Date: 20180301
  Receipt Date: 20180301
  Transmission Date: 20180509
  Serious: Yes (Death, Hospitalization)
  Sender: FDA-Public Use
  Company Number: US-NOVAST LABORATORIES, LTD-US-2018NOV000119

PATIENT
  Age: 16 Year
  Sex: Male

DRUGS (1)
  1. CARISOPRODOL\ASPIRIN [Suspect]
     Active Substance: ASPIRIN\CARISOPRODOL
     Indication: PRODUCT USED FOR UNKNOWN INDICATION
     Dosage: 400 DF, SINGLE
     Route: 048

REACTIONS (5)
  - Intentional overdose [Fatal]
  - Cardiac arrest [Fatal]
  - Respiratory distress [Unknown]
  - Respiratory acidosis [Unknown]
  - Completed suicide [Fatal]
